FAERS Safety Report 10145894 (Version 1)
Quarter: 2014Q2

REPORT INFORMATION
  Report Type: Spontaneous
  Country: US (occurrence: US)
  Receive Date: 20140501
  Receipt Date: 20140501
  Transmission Date: 20141212
  Serious: No
  Sender: FDA-Public Use
  Company Number: US-ABBVIE-13P-163-1088290-00

PATIENT
  Age: 75 Year
  Sex: Female
  Weight: 58.57 kg

DRUGS (7)
  1. CREON [Suspect]
     Indication: FLATULENCE
     Dosage: AFTER MEALS
     Dates: start: 20130425, end: 20130430
  2. CREON [Suspect]
     Indication: VOMITING
  3. AMLODOPINE [Concomitant]
     Indication: HYPERTENSION
  4. PEROXETINE [Concomitant]
     Indication: ANXIETY
  5. METOPROLOL [Concomitant]
     Indication: HEART RATE IRREGULAR
  6. VITAMINS [Concomitant]
     Indication: PRODUCT USED FOR UNKNOWN INDICATION
  7. B-12 [Concomitant]
     Indication: ANAEMIA
     Route: 050

REACTIONS (3)
  - Diarrhoea [Recovered/Resolved]
  - Nausea [Recovered/Resolved]
  - Dizziness [Recovered/Resolved]
